FAERS Safety Report 5746625-2 (Version None)
Quarter: 2008Q2

REPORT INFORMATION
  Report Type: 
  Country: None (occurrence: None)
  Receive Date: 20080522
  Receipt Date: 20080516
  Transmission Date: 20081010
  Serious: Yes (Hospitalization)
  Sender: FDA-Public Use
  Company Number: PHHY2008JP08070

PATIENT
  Sex: Male

DRUGS (4)
  1. BASEN [Concomitant]
  2. ASPIRIN [Concomitant]
  3. LOCHOL [Concomitant]
  4. FASTIC [Suspect]
     Indication: DIABETES MELLITUS
     Dosage: 270 MG/DAY
     Route: 048
     Dates: end: 20080501

REACTIONS (1)
  - ERYTHEMA MULTIFORME [None]
